FAERS Safety Report 8508066-4 (Version None)
Quarter: 2012Q2

REPORT INFORMATION
  Report Type: 
  Country: None (occurrence: None)
  Receive Date: 20120405
  Receipt Date: 20090921
  Transmission Date: 20120825
  Serious: Yes (Other)
  Sender: FDA-Public Use
  Company Number: PHEH2009US09923

PATIENT
  Sex: Female

DRUGS (8)
  1. FLUOXETINE [Concomitant]
  2. TRAMADOL HYDROCHLORIDE [Concomitant]
  3. LEVOTHYROXINE SODIUM [Concomitant]
  4. RECLAST [Suspect]
     Indication: OSTEOPOROSIS
     Dosage: 5 MG/100ML, 1 YEARLY, INJECTION NOS
     Dates: start: 20090812, end: 20090812
  5. AMLODIPINE [Concomitant]
  6. ASPIRIN [Concomitant]
  7. VITAMINS (NO INGREDIENTS/SUBSTANCES) [Concomitant]
  8. BENAZEPRIL HYDROCHLORIDE [Concomitant]

REACTIONS (6)
  - BONE PAIN [None]
  - ARTHRALGIA [None]
  - GAIT DISTURBANCE [None]
  - JOINT SWELLING [None]
  - INFLUENZA LIKE ILLNESS [None]
  - JOINT WARMTH [None]
